FAERS Safety Report 6302844-8 (Version None)
Quarter: 2009Q3

REPORT INFORMATION
  Report Type: 
  Country: None (occurrence: None)
  Receive Date: 20090810
  Receipt Date: 20090112
  Transmission Date: 20100115
  Serious: No
  Sender: FDA-Public Use
  Company Number: US-TYCO HEALTHCARE/MALLINCKRODT-T200900049

PATIENT
  Sex: Male
  Weight: 108.84 kg

DRUGS (2)
  1. MORPHINE [Suspect]
     Indication: ARTHRITIS
     Dosage: 30 MG, BID, ONE IN AM, ONE IN PM
     Route: 048
     Dates: start: 20090112
  2. MORPHINE SULFATE [Concomitant]
     Indication: ARTHRITIS
     Dosage: 15 MG, Q 6 HR
     Route: 048

REACTIONS (2)
  - DRUG INEFFECTIVE [None]
  - INCORRECT DOSE ADMINISTERED [None]
